FAERS Safety Report 10450567 (Version 1)
Quarter: 2014Q3

REPORT INFORMATION
  Report Type: Spontaneous
  Country: CA (occurrence: None)
  Receive Date: 20140910
  Receipt Date: 20140910
  Transmission Date: 20150326
  Serious: No
  Sender: FDA-Public Use
  Company Number: 14112ADE

PATIENT
  Age: 62 Year
  Sex: Female

DRUGS (5)
  1. THIOLA [Suspect]
     Active Substance: TIOPRONIN
     Indication: STAG HORN CALCULUS
     Dosage: 1.5 TO 2 YEARS
     Route: 048
  2. EVENING PRIMROSE OIL [Concomitant]
     Active Substance: EVENING PRIMROSE OIL
  3. VITAMIN D [Concomitant]
     Active Substance: CHOLECALCIFEROL
  4. PROBIOTIC [Concomitant]
     Active Substance: PROBIOTICS NOS
  5. MULIVITAMIN [Concomitant]

REACTIONS (2)
  - Pruritus [None]
  - Rash [None]
